FAERS Safety Report 7926468 (Version 2)
Quarter: 2014Q2

REPORT INFORMATION
  Report Type: Report from Study
  Country: US (occurrence: US)
  Receive Date: 20110502
  Receipt Date: 20140411
  Transmission Date: 20141212
  Serious: Yes (Other)
  Sender: FDA-Public Use
  Company Number: US-ASTRAZENECA-2010SE56634

PATIENT
  Age: 49 Year
  Sex: Male
  Weight: 72.6 kg

DRUGS (5)
  1. NEXIUM [Suspect]
     Indication: GASTROOESOPHAGEAL REFLUX DISEASE
     Route: 048
  2. NEXIUM [Suspect]
     Indication: DYSPEPSIA
     Route: 048
  3. LISINOPRIL [Suspect]
     Indication: CARDIAC DISORDER
     Route: 048
  4. METOPROLOL [Suspect]
     Indication: CARDIAC DISORDER
     Route: 048
  5. PRILOSEC OTC [Suspect]
     Route: 048

REACTIONS (9)
  - Intervertebral disc protrusion [Unknown]
  - Dyspepsia [Unknown]
  - Aphagia [Unknown]
  - Cardiac disorder [Unknown]
  - Spinal disorder [Unknown]
  - Back pain [Unknown]
  - Pain [Unknown]
  - Drug dose omission [Unknown]
  - Drug ineffective [Unknown]
